FAERS Safety Report 4853929-4 (Version None)
Quarter: 2005Q4

REPORT INFORMATION
  Report Type: 
  Country: None (occurrence: None)
  Receive Date: 20051213
  Receipt Date: 20051128
  Transmission Date: 20060501
  Serious: Yes (Hospitalization, Other)
  Sender: FDA-Public Use
  Company Number: US200511003023

PATIENT
  Sex: Female
  Weight: 48 kg

DRUGS (4)
  1. CYMBALTA [Suspect]
     Indication: DEPRESSION
     Dosage: 30 MG, DAILY (1/D)
     Dates: start: 20050701, end: 20051001
  2. CIPRO [Concomitant]
  3. MACROBID (NITROFURANTON) [Concomitant]
  4. LIPITOR [Concomitant]

REACTIONS (8)
  - ALANINE AMINOTRANSFERASE INCREASED [None]
  - ASPARTATE AMINOTRANSFERASE INCREASED [None]
  - BLOOD BILIRUBIN INCREASED [None]
  - INTERNATIONAL NORMALISED RATIO INCREASED [None]
  - JAUNDICE [None]
  - NEPHRITIS INTERSTITIAL [None]
  - PLATELET COUNT DECREASED [None]
  - RASH [None]
